FAERS Safety Report 4269169-6 (Version None)
Quarter: 2004Q1

REPORT INFORMATION
  Report Type: 
  Country: None (occurrence: None)
  Receive Date: 20040109
  Receipt Date: 20031230
  Transmission Date: 20041129
  Serious: Yes (Hospitalization)
  Sender: FDA-Public Use
  Company Number: US-JNJFOC-20040100208

PATIENT
  Age: 76 Year

DRUGS (11)
  1. INFLIXIMAB (INFLIXIMAB, RECOMBINANT) LYOPHILIZED POWDER [Suspect]
     Indication: RHEUMATOID ARTHRITIS
     Dosage: INTRAVENOUS
     Route: 042
     Dates: start: 20020328
  2. CLONADINE (CHLORPROMAZINE HYDROCHLORIDE) [Concomitant]
  3. ZESTRIL [Concomitant]
  4. AMARYL [Concomitant]
  5. ACTOS [Concomitant]
  6. METHOTREXATE [Concomitant]
  7. FOLIC ACID [Concomitant]
  8. FOSAMAX [Concomitant]
  9. CALCIUM (CALCIUM) [Concomitant]
  10. MULTIVITAMIN (MULTIVITAMINS) [Concomitant]
  11. INSULIN [Concomitant]

REACTIONS (1)
  - DIABETIC FOOT [None]
